FAERS Safety Report 15822844 (Version 3)
Quarter: 2019Q1

REPORT INFORMATION
  Report Type: Spontaneous
  Country: GB (occurrence: GB)
  Receive Date: 20190114
  Receipt Date: 20190208
  Transmission Date: 20190417
  Serious: Yes (Congenital Anomaly, Other)
  Sender: FDA-Public Use
  Company Number: GB-PFIZER INC-2019015124

PATIENT

DRUGS (2)
  1. MISOPROSTOL. [Suspect]
     Active Substance: MISOPROSTOL
     Indication: ABORTION INDUCED
     Dosage: 800 UG, UNK
     Route: 064
  2. MIFEPRISTONE [Suspect]
     Active Substance: MIFEPRISTONE
     Indication: ABORTION INDUCED
     Dosage: 200 MG, UNK
     Route: 064

REACTIONS (14)
  - Bell^s phenomenon [Unknown]
  - Polyhydramnios [Unknown]
  - Abnormal palmar/plantar creases [Unknown]
  - Low set ears [Unknown]
  - Nose deformity [Unknown]
  - Talipes [Unknown]
  - Cleft palate [Unknown]
  - Respiratory distress [Unknown]
  - Micrognathia [Unknown]
  - Hypertelorism of orbit [Unknown]
  - Maternal exposure during pregnancy [Unknown]
  - Gaze palsy [Unknown]
  - Trismus [Unknown]
  - Reduced facial expression [Unknown]
